FAERS Safety Report 9866752 (Version 1)
Quarter: 2014Q1

REPORT INFORMATION
  Report Type: Spontaneous
  Country: US (occurrence: US)
  Receive Date: 20140204
  Receipt Date: 20140204
  Transmission Date: 20141002
  Serious: No
  Sender: FDA-Public Use
  Company Number: US-009507513-1402USA000324

PATIENT
  Age: 17 Year
  Sex: Female
  Weight: 56.69 kg

DRUGS (1)
  1. NEXPLANON [Suspect]
     Dosage: UNK
     Dates: start: 20131106

REACTIONS (3)
  - Road traffic accident [Unknown]
  - Implant site pain [Unknown]
  - Pain [Unknown]
